FAERS Safety Report 12684855 (Version 6)
Quarter: 2016Q4

REPORT INFORMATION
  Report Type: Spontaneous
  Country: MX (occurrence: MX)
  Receive Date: 20160825
  Receipt Date: 20161104
  Transmission Date: 20170207
  Serious: Yes (Other)
  Sender: FDA-Public Use
  Company Number: MX-APOTEX-2016AP010657

PATIENT
  Age: 36 Year
  Sex: Female

DRUGS (4)
  1. PAXIL [Suspect]
     Active Substance: PAROXETINE HYDROCHLORIDE
     Indication: HAEMANGIOMA
  2. TRILEPTAL [Concomitant]
     Active Substance: OXCARBAZEPINE
     Indication: HAEMANGIOMA
     Route: 065
  3. PAXIL [Suspect]
     Active Substance: PAROXETINE HYDROCHLORIDE
     Indication: SLEEP DISORDER
     Dosage: 0.5 DF, QD
     Route: 065
  4. TRILEPTAL [Concomitant]
     Active Substance: OXCARBAZEPINE
     Indication: HEADACHE

REACTIONS (13)
  - Tachycardia [Unknown]
  - Condition aggravated [Unknown]
  - Treatment noncompliance [Unknown]
  - Fatigue [Unknown]
  - Vomiting [Unknown]
  - Headache [Unknown]
  - Arrhythmia [Unknown]
  - Drug dose omission [Unknown]
  - Off label use [Not Recovered/Not Resolved]
  - Epistaxis [Unknown]
  - Product availability issue [Unknown]
  - Dizziness [Unknown]
  - Somnolence [Unknown]
